FAERS Safety Report 5822081-0 (Version None)
Quarter: 2008Q3

REPORT INFORMATION
  Report Type: 
  Country: None (occurrence: None)
  Receive Date: 20080725
  Receipt Date: 20080716
  Transmission Date: 20090109
  Serious: Yes (Death, Other)
  Sender: FDA-Public Use
  Company Number: US-WYE-H05170708

PATIENT
  Sex: Female

DRUGS (1)
  1. PREMPRO [Suspect]

REACTIONS (1)
  - BREAST CANCER [None]
